FAERS Safety Report 21738304 (Version 2)
Quarter: 2024Q4

REPORT INFORMATION
  Report Type: Report from Study
  Country: US (occurrence: US)
  Receive Date: 20221216
  Receipt Date: 20241009
  Transmission Date: 20250115
  Serious: Yes (Other)
  Sender: NOVARTIS
  Company Number: US-002147023-NVSC2022US287217

PATIENT
  Age: 70 Year
  Sex: Female

DRUGS (1)
  1. ENTRESTO [Suspect]
     Active Substance: SACUBITRIL\VALSARTAN
     Indication: Dilated cardiomyopathy
     Dosage: UNK, BID
     Route: 048
     Dates: start: 20210520

REACTIONS (5)
  - Jaw fracture [Recovered/Resolved with Sequelae]
  - Meniscus injury [Unknown]
  - Tibia fracture [Unknown]
  - Arthritis [Unknown]
  - Illness [Unknown]

NARRATIVE: CASE EVENT DATE: 20220303
